FAERS Safety Report 12245352 (Version 1)
Quarter: 2016Q2

REPORT INFORMATION
  Report Type: Spontaneous
  Country: US (occurrence: None)
  Receive Date: 20160406
  Receipt Date: 20160406
  Transmission Date: 20160815
  Serious: Yes (Disabling)
  Sender: FDA-Public Use
  Company Number: None

PATIENT
  Age: 21 Year
  Sex: Male

DRUGS (1)
  1. OLD SPICE ANTIPERSPIRANT-DEODORANT + BODY SPRAY RED ZONE [Suspect]
     Active Substance: ALUMINUM ZIRCONIUM TRICHLOROHYDREX GLY
     Dosage: 1 APPLICATION DAILY TOPICAL
     Route: 061
     Dates: start: 201603, end: 201603

REACTIONS (5)
  - Skin exfoliation [None]
  - Movement disorder [None]
  - Erythema [None]
  - Skin irritation [None]
  - Blister [None]

NARRATIVE: CASE EVENT DATE: 201603
